FAERS Safety Report 16010699 (Version 1)
Quarter: 2019Q1

REPORT INFORMATION
  Report Type: Spontaneous
  Country: DK (occurrence: DK)
  Receive Date: 20190225
  Receipt Date: 20190225
  Transmission Date: 20190418
  Serious: Yes (Hospitalization, Other)
  Sender: FDA-Public Use
  Company Number: DK-MICRO LABS LIMITED-ML2019-00409

PATIENT
  Age: 62 Year
  Sex: Male

DRUGS (1)
  1. LOSARTAN. [Suspect]
     Active Substance: LOSARTAN

REACTIONS (4)
  - Toxicity to various agents [Unknown]
  - Hypotension [Recovering/Resolving]
  - Hyperglycaemia [Unknown]
  - Metabolic acidosis [Unknown]
